FAERS Safety Report 5216917-4 (Version None)
Quarter: 2007Q1

REPORT INFORMATION
  Report Type: 
  Country: None (occurrence: None)
  Receive Date: 20070124
  Receipt Date: 20070115
  Transmission Date: 20070707
  Serious: Yes (Other)
  Sender: FDA-Public Use
  Company Number: PHMT2007CA00517

PATIENT
  Sex: Male

DRUGS (1)
  1. DIOVAN HCT [Suspect]
     Dosage: 160MG/12.5MG
     Route: 048
     Dates: start: 20070108

REACTIONS (1)
  - HAEMATOCHEZIA [None]
